FAERS Safety Report 4352665-0 (Version None)
Quarter: 2004Q2

REPORT INFORMATION
  Report Type: 
  Country: None (occurrence: None)
  Receive Date: 20040504
  Receipt Date: 20040422
  Transmission Date: 20050107
  Serious: Yes (Hospitalization)
  Sender: FDA-Public Use
  Company Number: GB-BRISTOL-MYERS SQUIBB COMPANY-12568143

PATIENT
  Age: 8 Year
  Weight: 26 kg

DRUGS (4)
  1. DIDANOSINE [Suspect]
     Indication: HIV INFECTION
     Route: 048
     Dates: start: 20011001, end: 20040224
  2. VIREAD [Suspect]
     Indication: HIV INFECTION
  3. KALETRA [Concomitant]
     Route: 048
     Dates: start: 20011001
  4. COTRIM [Concomitant]
     Dates: start: 20011001

REACTIONS (3)
  - FAILURE TO THRIVE [None]
  - HEPATIC STEATOSIS [None]
  - PANCREATITIS ACUTE [None]
